FAERS Safety Report 8071729-1 (Version None)
Quarter: 2012Q1

REPORT INFORMATION
  Report Type: 
  Country: None (occurrence: None)
  Receive Date: 20120125
  Receipt Date: 20120119
  Transmission Date: 20120608
  Serious: Yes (Hospitalization, Other)
  Sender: FDA-Public Use
  Company Number: US-MERCK-1110USA00454

PATIENT
  Age: 70 Year
  Sex: Female
  Weight: 52 kg

DRUGS (4)
  1. FOSAMAX [Suspect]
     Indication: OSTEOPOROSIS
     Route: 048
     Dates: start: 20040405, end: 20080512
  2. FOSAMAX [Suspect]
     Route: 048
     Dates: start: 20080828
  3. ZOCOR [Concomitant]
     Route: 048
  4. NAPROXEN [Concomitant]
     Route: 065

REACTIONS (22)
  - TRANSIENT ISCHAEMIC ATTACK [None]
  - DECUBITUS ULCER [None]
  - AVULSION FRACTURE [None]
  - PAIN IN EXTREMITY [None]
  - INCREASED TENDENCY TO BRUISE [None]
  - HUMERUS FRACTURE [None]
  - OSTEOARTHRITIS [None]
  - BURSITIS [None]
  - OSTEOPENIA [None]
  - OVERDOSE [None]
  - BONE DISORDER [None]
  - FOOT FRACTURE [None]
  - TRAUMATIC ARTHRITIS [None]
  - HIP FRACTURE [None]
  - RADIUS FRACTURE [None]
  - HYPERTENSION [None]
  - FALL [None]
  - FEMUR FRACTURE [None]
  - UPPER LIMB FRACTURE [None]
  - NECK PAIN [None]
  - NAUSEA [None]
  - PERIARTHRITIS [None]
